FAERS Safety Report 20069030 (Version 2)
Quarter: 2022Q1

REPORT INFORMATION
  Report Type: Spontaneous
  Country: JP (occurrence: JP)
  Receive Date: 20211115
  Receipt Date: 20220204
  Transmission Date: 20220424
  Serious: Yes (Hospitalization, Disabling, Other)
  Sender: FDA-Public Use
  Company Number: JP-ABBVIE-21K-087-4155931-00

PATIENT
  Age: 81 Year

DRUGS (2)
  1. VENCLEXTA [Suspect]
     Active Substance: VENETOCLAX
     Indication: Acute myeloid leukaemia
     Route: 048
     Dates: start: 20210728, end: 20210825
  2. AZACITIDINE [Concomitant]
     Active Substance: AZACITIDINE
     Indication: Acute myeloid leukaemia
     Dates: start: 20210728

REACTIONS (3)
  - Aplastic anaemia [Not Recovered/Not Resolved]
  - Neutrophil count decreased [Recovering/Resolving]
  - Fibrosis [Recovered/Resolved]

NARRATIVE: CASE EVENT DATE: 20210101
